FAERS Safety Report 9084791 (Version 1)
Quarter: 2013Q1

REPORT INFORMATION
  Report Type: Report from Study
  Country: US (occurrence: US)
  Receive Date: 20130131
  Receipt Date: 20130131
  Transmission Date: 20140127
  Serious: No
  Sender: FDA-Public Use
  Company Number: US-ABBOTT-12P-163-1014279-00

PATIENT
  Age: 51 Year
  Sex: Female

DRUGS (5)
  1. HUMIRA [Suspect]
     Indication: RHEUMATOID ARTHRITIS
     Dates: start: 20121106
  2. UNKNOWN STOMACH PILL [Concomitant]
     Indication: GASTROOESOPHAGEAL REFLUX DISEASE
  3. ALLEGRA [Concomitant]
     Indication: HYPERSENSITIVITY
  4. VITAMIN D [Concomitant]
     Indication: VITAMIN D DECREASED
  5. FLONASE [Concomitant]
     Indication: HYPERSENSITIVITY
     Dosage: TWO SPRAYS EACH NOSTRIL DAILY

REACTIONS (4)
  - Headache [Recovered/Resolved]
  - Headache [Not Recovered/Not Resolved]
  - Migraine [Not Recovered/Not Resolved]
  - Back pain [Not Recovered/Not Resolved]
